APPROVED DRUG PRODUCT: TRANEXAMIC ACID
Active Ingredient: TRANEXAMIC ACID
Strength: 650MG
Dosage Form/Route: TABLET;ORAL
Application: A219702 | Product #001 | TE Code: AB
Applicant: I 3 PHARMACEUTICALS LLC
Approved: Jan 26, 2026 | RLD: No | RS: No | Type: RX